FAERS Safety Report 8556674-7 (Version None)
Quarter: 2012Q2

REPORT INFORMATION
  Report Type: 
  Country: None (occurrence: None)
  Receive Date: 20120418
  Receipt Date: 20100525
  Transmission Date: 20120825
  Serious: Yes (Other)
  Sender: FDA-Public Use
  Company Number: PHHY2010US34366

PATIENT
  Age: 85 Year
  Sex: Female

DRUGS (1)
  1. ENABLEX [Suspect]
     Dosage: ORAL

REACTIONS (1)
  - CONFUSIONAL STATE [None]
